FAERS Safety Report 4705515-4 (Version None)
Quarter: 2005Q2

REPORT INFORMATION
  Report Type: 
  Country: None (occurrence: None)
  Receive Date: 20050628
  Receipt Date: 20050615
  Transmission Date: 20051028
  Serious: Yes (Congenital Anomaly)
  Sender: FDA-Public Use
  Company Number: GBS050617652

PATIENT

DRUGS (1)
  1. FLUOXETINE [Suspect]

REACTIONS (3)
  - ANTERIOR CHAMBER CLEAVAGE SYNDROME [None]
  - CONGENITAL MULTIPLEX ARTHROGRYPOSIS [None]
  - DRUG EXPOSURE DURING PREGNANCY [None]
